FAERS Safety Report 14387135 (Version 1)
Quarter: 2018Q1

REPORT INFORMATION
  Report Type: Report from Study
  Country: US (occurrence: US)
  Receive Date: 20180115
  Receipt Date: 20180115
  Transmission Date: 20180509
  Serious: Yes (Death)
  Sender: FDA-Public Use
  Company Number: US-ACTELION-A-NJ2017-153672

PATIENT
  Age: 47 Year
  Sex: Female
  Weight: 87.75 kg

DRUGS (2)
  1. TRACLEER [Suspect]
     Active Substance: BOSENTAN
     Indication: PULMONARY ARTERIAL HYPERTENSION
     Dosage: 125 MG, BID
     Route: 048
  2. ADCIRCA [Concomitant]
     Active Substance: TADALAFIL

REACTIONS (8)
  - Cough [Unknown]
  - Fatigue [Unknown]
  - Fluid retention [Unknown]
  - Cardiac disorder [Fatal]
  - Malaise [Unknown]
  - Pulmonary hypertension [Fatal]
  - Drug dose omission [Unknown]
  - Dyspnoea [Unknown]
